FAERS Safety Report 8808803 (Version 1)
Quarter: 2012Q4

REPORT INFORMATION
  Report Type: 
  Country: US (occurrence: US)
  Receive Date: 20120926
  Receipt Date: 20120926
  Transmission Date: 20130627
  Serious: No
  Sender: FDA-Public Use
  Company Number: US-B.I. PHARMACEUTICALS,INC./RIDGEFIELD-2012-BP-23326BP

PATIENT
  Age: 79 Year
  Sex: Male
  Weight: 91 kg

DRUGS (5)
  1. SPIRIVA [Suspect]
     Indication: CHRONIC OBSTRUCTIVE PULMONARY DISEASE
     Dosage: 18 mcg
     Route: 055
     Dates: start: 201109
  2. SPIRIVA [Suspect]
     Route: 048
     Dates: start: 20120924, end: 20120924
  3. ALBUTEROL [Concomitant]
     Indication: CHRONIC OBSTRUCTIVE PULMONARY DISEASE
     Route: 055
     Dates: start: 1992
  4. SYMBICORT [Concomitant]
     Indication: CHRONIC OBSTRUCTIVE PULMONARY DISEASE
     Dosage: 9 mg
     Dates: start: 201207
  5. MONTELUTAST [Concomitant]
     Indication: ASTHMA
     Dosage: 10 mg
     Route: 048
     Dates: start: 2002

REACTIONS (1)
  - Incorrect route of drug administration [Recovered/Resolved]
